FAERS Safety Report 5953166-6 (Version None)
Quarter: 2008Q4

REPORT INFORMATION
  Report Type: 
  Country: None (occurrence: None)
  Receive Date: 20081114
  Receipt Date: 20081105
  Transmission Date: 20090506
  Serious: Yes (Hospitalization, Other)
  Sender: FDA-Public Use
  Company Number: US-BAYER-200835179NA

PATIENT
  Age: 32 Year
  Sex: Female
  Weight: 78 kg

DRUGS (5)
  1. MIRENA [Suspect]
     Indication: DRUG USE FOR UNKNOWN INDICATION
     Route: 015
     Dates: start: 20080707, end: 20080814
  2. CHANTIX [Concomitant]
     Indication: EX-TOBACCO USER
     Route: 048
  3. KLONOPIN [Concomitant]
     Indication: ANXIETY
     Route: 048
  4. ABILIFY [Concomitant]
     Indication: BIPOLAR DISORDER
  5. BENTYL [Concomitant]
     Indication: DRUG USE FOR UNKNOWN INDICATION

REACTIONS (3)
  - ABASIA [None]
  - GENERALISED OEDEMA [None]
  - INTRA-UTERINE CONTRACEPTIVE DEVICE REMOVAL [None]
